FAERS Safety Report 5495544-8 (Version None)
Quarter: 2007Q4

REPORT INFORMATION
  Report Type: 
  Country: None (occurrence: None)
  Receive Date: 20071015
  Receipt Date: 20070417
  Transmission Date: 20080405
  Serious: Yes (Other)
  Sender: FDA-Public Use
  Company Number: S07-USA-01650-01

PATIENT
  Age: 18 Year
  Sex: Female

DRUGS (3)
  1. LEXAPRO [Suspect]
     Indication: DEPRESSION
     Dosage: 10 MG QD PO
     Route: 048
     Dates: start: 20070409, end: 20070410
  2. LEXAPRO [Suspect]
     Indication: DEPRESSION
     Dosage: 5 MG QOD PO
     Route: 048
     Dates: start: 20070419, end: 20070425
  3. LEXAPRO [Suspect]
     Indication: DEPRESSION
     Dosage: 5 MG QD PO
     Route: 048
     Dates: start: 20070411, end: 20070418

REACTIONS (2)
  - DIZZINESS [None]
  - SYNCOPE [None]
